FAERS Safety Report 7741206-3 (Version None)
Quarter: 2011Q3

REPORT INFORMATION
  Report Type: 
  Country: None (occurrence: None)
  Receive Date: 20110909
  Receipt Date: 20110826
  Transmission Date: 20111222
  Serious: Yes (Death)
  Sender: FDA-Public Use
  Company Number: GB-BAUSCH-2011BL005782

PATIENT
  Age: 92 Year
  Sex: Female

DRUGS (16)
  1. DOUBLEBASE [Concomitant]
  2. PREDNISOLONE [Suspect]
     Indication: TEMPORAL ARTERITIS
     Route: 065
  3. FLOXACILLIN SODIUM [Concomitant]
  4. CLOPIDOGREL [Suspect]
     Indication: CEREBROVASCULAR ACCIDENT PROPHYLAXIS
     Dosage: DOSE UNIT:UNKNOWN
     Route: 065
     Dates: start: 20110505, end: 20110604
  5. CALCICHEW D3 /UNK/ [Concomitant]
  6. CLOPIDOGREL [Suspect]
     Indication: ATRIAL FIBRILLATION
     Dosage: DOSE UNIT:UNKNOWN
     Route: 065
     Dates: start: 20110505, end: 20110604
  7. FUROSEMIDE [Concomitant]
  8. ALENDRONIC ACID [Concomitant]
  9. DORZOLAMIDE HYDROCHLORIDE [Concomitant]
  10. LANSOPRAZOLE [Concomitant]
  11. LATANOPROST [Concomitant]
  12. ZINC OXIDE [Concomitant]
  13. CANDESARTAN CILEXETIL [Concomitant]
  14. METFORMIN [Concomitant]
  15. PREDNISOLONE [Suspect]
     Route: 065
     Dates: start: 20110517
  16. INADINE [Concomitant]

REACTIONS (2)
  - DRUG INTERACTION [None]
  - DUODENAL ULCER HAEMORRHAGE [None]
